FAERS Safety Report 15098164 (Version 1)
Quarter: 2018Q3

REPORT INFORMATION
  Report Type: Report from Study
  Country: FR (occurrence: FR)
  Receive Date: 20180702
  Receipt Date: 20180702
  Transmission Date: 20181010
  Serious: Yes (Life-Threatening, Hospitalization)
  Sender: FDA-Public Use
  Company Number: FR-GUERBET-FR-20180357

PATIENT
  Age: 4 Year
  Sex: Male

DRUGS (4)
  1. CHLORAL HYDRATE [Concomitant]
     Active Substance: CHLORAL HYDRATE
     Indication: PREMEDICATION
     Route: 054
     Dates: start: 20170921, end: 20170921
  2. CLAFORAN [Concomitant]
     Active Substance: CEFOTAXIME SODIUM
     Indication: ENCEPHALITIS
     Route: 042
     Dates: start: 20170915, end: 20170920
  3. DOTAREM [Suspect]
     Active Substance: GADOTERATE MEGLUMINE
     Indication: NUCLEAR MAGNETIC RESONANCE IMAGING BRAIN
     Route: 042
     Dates: start: 20170921, end: 20170921
  4. ZOVIRAX [Concomitant]
     Active Substance: ACYCLOVIR
     Indication: ENCEPHALITIS
     Route: 042
     Dates: start: 20170915, end: 20170920

REACTIONS (6)
  - Hepatic failure [Not Recovered/Not Resolved]
  - Renal failure [Not Recovered/Not Resolved]
  - Hyperthermia [Not Recovered/Not Resolved]
  - Coma [Not Recovered/Not Resolved]
  - Chills [Not Recovered/Not Resolved]
  - Diarrhoea [Not Recovered/Not Resolved]

NARRATIVE: CASE EVENT DATE: 20170921
